FAERS Safety Report 26121450 (Version 2)
Quarter: 2025Q4

REPORT INFORMATION
  Report Type: Spontaneous
  Country: US (occurrence: US)
  Receive Date: 20251204
  Receipt Date: 20251217
  Transmission Date: 20260118
  Serious: Yes (Hospitalization)
  Sender: SANOFI AVENTIS
  Company Number: US-SA-2025SA361869

PATIENT
  Age: 70 Year
  Sex: Female

DRUGS (10)
  1. DUPIXENT [Suspect]
     Active Substance: DUPILUMAB
     Indication: Asthma
     Dosage: 200 MG, QOW
     Route: 058
     Dates: start: 20251108
  2. ASMANEX [Concomitant]
     Active Substance: MOMETASONE FUROATE
  3. BUPROPION [Concomitant]
     Active Substance: BUPROPION
  4. CELEBREX [Concomitant]
     Active Substance: CELECOXIB
  5. COSENTYX [Concomitant]
     Active Substance: SECUKINUMAB
  6. DIOVAN [Concomitant]
     Active Substance: VALSARTAN
  7. FAMOTIDINE [Concomitant]
     Active Substance: FAMOTIDINE
  8. FLUTICASONE [Concomitant]
     Active Substance: FLUTICASONE
  9. FOLIC ACID [Concomitant]
     Active Substance: FOLIC ACID
  10. GABAPENTIN [Concomitant]
     Active Substance: GABAPENTIN

REACTIONS (4)
  - Surgery [Unknown]
  - Hospitalisation [Unknown]
  - Nausea [Not Recovered/Not Resolved]
  - Arthralgia [Not Recovered/Not Resolved]

NARRATIVE: CASE EVENT DATE: 20250101
